FAERS Safety Report 7552016-4 (Version None)
Quarter: 2011Q2

REPORT INFORMATION
  Report Type: 
  Country: None (occurrence: None)
  Receive Date: 20110616
  Receipt Date: 20110613
  Transmission Date: 20111010
  Serious: Yes (Other)
  Sender: FDA-Public Use
  Company Number: US-AMGEN-QUU397817

PATIENT
  Sex: Male

DRUGS (3)
  1. NPLATE [Suspect]
     Indication: THROMBOCYTOPENIA
     Dates: start: 20081125
  2. RITUXIMAB [Concomitant]
     Dosage: UNK UNK, UNK
     Dates: start: 20080624
  3. NPLATE [Suspect]
     Indication: IDIOPATHIC THROMBOCYTOPENIC PURPURA
     Dosage: 90 A?G, UNK
     Dates: start: 20081125, end: 20090509

REACTIONS (1)
  - DRUG INEFFECTIVE [None]
